FAERS Safety Report 5136737-9 (Version None)
Quarter: 2006Q4

REPORT INFORMATION
  Report Type: 
  Country: None (occurrence: None)
  Receive Date: 20061023
  Receipt Date: 20061010
  Transmission Date: 20070319
  Serious: Yes (Other)
  Sender: FDA-Public Use
  Company Number: SPV1-2006-1262

PATIENT
  Age: 66 Year

DRUGS (2)
  1. PENTASA [Suspect]
  2. MINERAL SALTS [Suspect]

REACTIONS (1)
  - RENAL FAILURE [None]
